FAERS Safety Report 24070953 (Version 1)
Quarter: 2024Q3

REPORT INFORMATION
  Report Type: Spontaneous
  Country: US (occurrence: US)
  Receive Date: 20240710
  Receipt Date: 20240710
  Transmission Date: 20241017
  Serious: No
  Sender: ROCHE
  Company Number: US-ROCHE-3501181

PATIENT

DRUGS (1)
  1. ALECENSA [Suspect]
     Active Substance: ALECTINIB HYDROCHLORIDE
     Indication: Product used for unknown indication
     Route: 065

REACTIONS (6)
  - Teeth brittle [Unknown]
  - Trichorrhexis [Unknown]
  - Pyrexia [Unknown]
  - Heart rate increased [Unknown]
  - Rash [Unknown]
  - Pruritus [Unknown]
